FAERS Safety Report 24611551 (Version 1)
Quarter: 2024Q4

REPORT INFORMATION
  Report Type: Spontaneous
  Country: BE (occurrence: BE)
  Receive Date: 20241113
  Receipt Date: 20241113
  Transmission Date: 20250115
  Serious: Yes (Hospitalization, Other)
  Sender: ACCORD
  Company Number: BE-Accord-455137

PATIENT
  Age: 69 Year
  Sex: Male
  Weight: 74.4 kg

DRUGS (6)
  1. TACROLIMUS [Suspect]
     Active Substance: TACROLIMUS
     Indication: Product used for unknown indication
     Dates: start: 20170224
  2. DIFLUCAN [Suspect]
     Active Substance: FLUCONAZOLE
     Indication: Product used for unknown indication
     Dates: start: 20240819, end: 20240821
  3. MEDROL [Suspect]
     Active Substance: METHYLPREDNISOLONE
     Indication: Product used for unknown indication
     Dates: start: 20180226
  4. ITACITINIB [Suspect]
     Active Substance: ITACITINIB
     Indication: Bronchiolitis obliterans syndrome
     Dosage: 400 MILLIGRAM, QD
     Route: 048
     Dates: start: 20231013
  5. ITACITINIB [Suspect]
     Active Substance: ITACITINIB
     Indication: Bronchiolitis obliterans syndrome
     Dosage: 300 MILLIGRAM, QD
     Route: 048
     Dates: start: 20240830, end: 20240915
  6. MEDROL [Suspect]
     Active Substance: METHYLPREDNISOLONE
     Indication: Product used for unknown indication
     Dates: start: 20240919, end: 20241001

REACTIONS (7)
  - Bronchopulmonary aspergillosis [Recovering/Resolving]
  - Calculus urinary [Recovered/Resolved]
  - Oesophageal candidiasis [Recovered/Resolved]
  - Cryptococcal fungaemia [Recovering/Resolving]
  - Anaemia [Recovered/Resolved]
  - Transplant rejection [Not Recovered/Not Resolved]
  - Haemoptysis [Recovered/Resolved]

NARRATIVE: CASE EVENT DATE: 20240731
